FAERS Safety Report 25630129 (Version 3)
Quarter: 2025Q3

REPORT INFORMATION
  Report Type: Report from Study
  Country: US (occurrence: US)
  Receive Date: 20250801
  Receipt Date: 20250925
  Transmission Date: 20251021
  Serious: Yes (Hospitalization, Other)
  Sender: SUNOVION
  Company Number: US-SUMITOMO PHARMA SWITZERLAND GMBH-2025SPA009461

PATIENT
  Age: 64 Year
  Sex: Male

DRUGS (2)
  1. ORGOVYX [Suspect]
     Active Substance: RELUGOLIX
     Indication: Prostate cancer
     Route: 048
  2. ORGOVYX [Suspect]
     Active Substance: RELUGOLIX
     Route: 048

REACTIONS (14)
  - Nephrolithiasis [Unknown]
  - Hunger [Not Recovered/Not Resolved]
  - Pain [Unknown]
  - Blood pressure abnormal [Unknown]
  - Weight decreased [Unknown]
  - Nocturia [Unknown]
  - Increased appetite [Unknown]
  - Asthma [Unknown]
  - Faeces hard [Unknown]
  - Temperature intolerance [Unknown]
  - Headache [Recovered/Resolved]
  - Hot flush [Not Recovered/Not Resolved]
  - Fatigue [Unknown]
  - Weight increased [Unknown]
